FAERS Safety Report 8347575-8 (Version None)
Quarter: 2012Q2

REPORT INFORMATION
  Report Type: 
  Country: None (occurrence: None)
  Receive Date: 20120509
  Receipt Date: 20120503
  Transmission Date: 20120825
  Serious: Yes (Other)
  Sender: FDA-Public Use
  Company Number: US-ABBOTT-12P-163-0932017-00

PATIENT
  Sex: Female

DRUGS (4)
  1. SIMCOR [Suspect]
     Indication: BLOOD CHOLESTEROL INCREASED
     Dosage: 500MG/20MG AT BEDTIME
     Dates: start: 20100101, end: 20110101
  2. ASPIRIN [Concomitant]
     Indication: PRODUCT USED FOR UNKNOWN INDICATION
     Dosage: HEART DOSE FREQUENCY
  3. CARBONAL [Concomitant]
     Indication: PRODUCT USED FOR UNKNOWN INDICATION
  4. ASPIRIN [Concomitant]
     Dosage: WAS TAKING 30 MINUTES BEFORE SIMCOR

REACTIONS (3)
  - PRURITUS [None]
  - SKIN BURNING SENSATION [None]
  - BREAST CANCER [None]
